FAERS Safety Report 16278783 (Version 1)
Quarter: 2019Q2

REPORT INFORMATION
  Report Type: Spontaneous
  Country: AU (occurrence: AU)
  Receive Date: 20190506
  Receipt Date: 20190506
  Transmission Date: 20190711
  Serious: Yes (Death, Hospitalization)
  Sender: FDA-Public Use
  Company Number: AU-PFIZER INC-2019192053

PATIENT
  Age: 60 Year
  Sex: Male

DRUGS (3)
  1. METRONIDAZOLE. [Suspect]
     Active Substance: METRONIDAZOLE
     Indication: ANTIBIOTIC PROPHYLAXIS
     Dosage: UNK ( PROPHYLACTIC ANTIBIOTICS, ADMINISTERED FOR 24 H)
  2. CEFOTAXIME [Suspect]
     Active Substance: CEFOTAXIME SODIUM
     Indication: ANTIBIOTIC PROPHYLAXIS
     Dosage: UNK (PROPHYLACTIC ANTIBIOTICS, ADMINISTERED FOR 24 H)
  3. SEPRAFILM [Concomitant]
     Indication: POSTOPERATIVE ADHESION
     Dosage: UNK

REACTIONS (2)
  - Clostridium difficile infection [Fatal]
  - Pseudomembranous colitis [Fatal]
